FAERS Safety Report 7981806 (Version 2)
Quarter: 2012Q4

REPORT INFORMATION
  Report Type: 
  Country: CA (occurrence: CA)
  Receive Date: 20110608
  Receipt Date: 20121106
  Transmission Date: 20130627
  Serious: Yes (Death)
  Sender: FDA-Public Use
  Company Number: PHMT2007CA00446

PATIENT
  Sex: Female

DRUGS (1)
  1. SANDOSTATIN LAR [Suspect]
     Indication: ACROMEGALY
     Dosage: 30 mg, QMO
     Dates: start: 20060628, end: 20061215

REACTIONS (4)
  - Death [Fatal]
  - Emotional disorder [Unknown]
  - Abdominal pain upper [Unknown]
  - Injection site pain [Unknown]
